FAERS Safety Report 13572535 (Version 1)
Quarter: 2017Q2

REPORT INFORMATION
  Report Type: Spontaneous
  Country: PR (occurrence: PR)
  Receive Date: 20170523
  Receipt Date: 20170523
  Transmission Date: 20170830
  Serious: No
  Sender: FDA-Public Use
  Company Number: PR-JNJFOC-20170423926

PATIENT
  Age: 73 Year
  Sex: Female
  Weight: 58 kg

DRUGS (4)
  1. IMBRUVICA [Suspect]
     Active Substance: IBRUTINIB
     Indication: PRODUCT USED FOR UNKNOWN INDICATION
     Route: 048
     Dates: start: 20170214
  2. NAMENDA [Concomitant]
     Active Substance: MEMANTINE HYDROCHLORIDE
  3. KEPPRA [Concomitant]
     Active Substance: LEVETIRACETAM
  4. ARICEPT [Concomitant]
     Active Substance: DONEPEZIL HYDROCHLORIDE

REACTIONS (2)
  - Drug prescribing error [Unknown]
  - Drug dose omission [Unknown]

NARRATIVE: CASE EVENT DATE: 2017
